FAERS Safety Report 8108152-7 (Version None)
Quarter: 2012Q1

REPORT INFORMATION
  Report Type: 
  Country: None (occurrence: None)
  Receive Date: 20120202
  Receipt Date: 20120125
  Transmission Date: 20120608
  Serious: Yes (Hospitalization)
  Sender: FDA-Public Use
  Company Number: US-JNJFOC-20120104803

PATIENT
  Sex: Female
  Weight: 72.9 kg

DRUGS (14)
  1. IMITREX [Concomitant]
     Route: 048
  2. AZULFIDINE [Concomitant]
     Route: 048
     Dates: start: 20051022
  3. ZOCOR [Concomitant]
     Route: 048
  4. AMITRIPTYLINE HCL [Concomitant]
     Route: 048
  5. LASIX [Concomitant]
     Route: 048
  6. PREDNISONE TAB [Concomitant]
     Route: 048
     Dates: start: 20060722
  7. KLOR-CON [Concomitant]
     Route: 048
  8. SINEMET [Concomitant]
     Dosage: 25/100
     Route: 048
  9. METHOTREXATE [Concomitant]
     Route: 048
     Dates: start: 20060114
  10. GOLIMUMAB [Suspect]
     Route: 058
  11. GOLIMUMAB [Suspect]
     Indication: RHEUMATOID ARTHRITIS
     Route: 058
     Dates: start: 20070312, end: 20111212
  12. RELAFEN [Concomitant]
     Route: 048
     Dates: start: 20041002
  13. FOLIC ACID [Concomitant]
     Route: 048
     Dates: start: 20080303
  14. TYLENOL W/ CODEINE [Concomitant]
     Route: 048

REACTIONS (2)
  - SEPSIS [None]
  - PNEUMONIA [None]
